FAERS Safety Report 5483273-6 (Version None)
Quarter: 2007Q4

REPORT INFORMATION
  Report Type: 
  Country: None (occurrence: None)
  Receive Date: 20071012
  Receipt Date: 20071004
  Transmission Date: 20080405
  Serious: Yes (Other)
  Sender: FDA-Public Use
  Company Number: PHBS2007BR16535

PATIENT
  Age: 73 Year
  Sex: Female

DRUGS (3)
  1. FAMOTIDINE [Concomitant]
     Dates: start: 20020601
  2. NORTRIPTYLINE HCL [Concomitant]
     Dates: start: 20020601
  3. ZELNORM [Suspect]
     Indication: IRRITABLE BOWEL SYNDROME
     Dosage: 12 MG, BID
     Route: 048
     Dates: start: 20020601

REACTIONS (1)
  - ACUTE MYOCARDIAL INFARCTION [None]
